FAERS Safety Report 21336136 (Version 2)
Quarter: 2022Q3

REPORT INFORMATION
  Report Type: Spontaneous
  Country: SG (occurrence: SG)
  Receive Date: 20220915
  Receipt Date: 20220928
  Transmission Date: 20221026
  Serious: Yes (Other)
  Sender: FDA-Public Use
  Company Number: SG-TEVA-2022-SG-2072316

PATIENT
  Age: 27 Year
  Sex: Female

DRUGS (10)
  1. ACYCLOVIR [Suspect]
     Active Substance: ACYCLOVIR
     Indication: Aphthous ulcer
     Route: 065
     Dates: start: 2019
  2. GABAPENTIN [Suspect]
     Active Substance: GABAPENTIN
     Indication: Aphthous ulcer
     Route: 065
     Dates: start: 2019
  3. PREDNISOLONE [Suspect]
     Active Substance: PREDNISOLONE
     Indication: Aphthous ulcer
     Dosage: .5 MG/KG DAILY;
     Route: 048
  4. PREDNISOLONE [Suspect]
     Active Substance: PREDNISOLONE
     Dosage: 1 MG/KG DAILY;
     Route: 048
  5. KENALOG [Suspect]
     Active Substance: TRIAMCINOLONE ACETONIDE
     Indication: Aphthous ulcer
     Route: 026
     Dates: start: 2019
  6. TRIAMCINOLONE ACETONIDE [Suspect]
     Active Substance: TRIAMCINOLONE ACETONIDE
     Indication: Aphthous ulcer
     Dosage: 6 MILLIGRAM DAILY; MICRONEEDLE
     Route: 061
     Dates: start: 2019
  7. TACROLIMUS [Concomitant]
     Active Substance: TACROLIMUS
     Indication: Aphthous ulcer
     Route: 065
  8. CYCLOSPORINE [Concomitant]
     Active Substance: CYCLOSPORINE
     Indication: Aphthous ulcer
     Dosage: 4 MG/KG DAILY;
     Route: 065
  9. TRAMADOL [Concomitant]
     Active Substance: TRAMADOL
     Indication: Pain
     Route: 065
  10. OXYCODONE [Concomitant]
     Active Substance: OXYCODONE
     Indication: Pain
     Route: 065

REACTIONS (3)
  - Weight increased [Unknown]
  - Administration site pain [Recovered/Resolved]
  - Drug ineffective [Unknown]

NARRATIVE: CASE EVENT DATE: 20190101
